FAERS Safety Report 23682640 (Version 1)
Quarter: 2024Q1

REPORT INFORMATION
  Report Type: Spontaneous
  Country: GB (occurrence: GB)
  Receive Date: 20240328
  Receipt Date: 20240328
  Transmission Date: 20240410
  Serious: Yes (Other)
  Sender: FDA-Public Use
  Company Number: None

PATIENT
  Age: 52 Year
  Sex: Female
  Weight: 67 kg

DRUGS (7)
  1. VENLAFAXINE [Suspect]
     Active Substance: VENLAFAXINE HYDROCHLORIDE
     Indication: Depression
     Dosage: 37.5MG ONCE A DAY
     Route: 065
     Dates: start: 20240313, end: 20240314
  2. COCODAMOL [Concomitant]
     Active Substance: ACETAMINOPHEN\CODEINE PHOSPHATE
     Indication: Arthralgia
     Dosage: UNKNOWN
     Route: 065
     Dates: start: 20040730
  3. FREMANEZUMAB [Concomitant]
     Active Substance: FREMANEZUMAB
     Indication: Migraine
     Dosage: UNKNOWN
     Route: 065
     Dates: start: 20230823
  4. MELATONIN [Concomitant]
     Active Substance: MELATONIN
     Indication: Migraine
     Dosage: UNKNOWN
     Route: 065
     Dates: start: 20180402
  5. METOCLOPRAMIDE [Concomitant]
     Active Substance: METOCLOPRAMIDE
     Indication: Migraine
     Dosage: UNKNOWN
     Route: 065
     Dates: start: 20040730
  6. ESTRADIOL [Concomitant]
     Active Substance: ESTRADIOL
     Indication: Menopause
     Dosage: UNKNOWN
     Route: 065
     Dates: start: 20230420
  7. PROGESTERONE [Concomitant]
     Active Substance: PROGESTERONE
     Indication: Menopause
     Dosage: UNKNOWN
     Route: 065
     Dates: start: 20230420

REACTIONS (4)
  - Confusional state [Recovering/Resolving]
  - Nausea [Recovered/Resolved]
  - Dissociation [Recovered/Resolved]
  - Muscle twitching [Recovered/Resolved]

NARRATIVE: CASE EVENT DATE: 20240313
